FAERS Safety Report 15699878 (Version 1)
Quarter: 2018Q4

REPORT INFORMATION
  Report Type: Spontaneous
  Country: FR (occurrence: FR)
  Receive Date: 20181207
  Receipt Date: 20181207
  Transmission Date: 20190205
  Serious: Yes (Hospitalization)
  Sender: FDA-Public Use
  Company Number: FR-CELGENEUS-FRA-20181200753

PATIENT
  Age: 68 Year
  Sex: Male

DRUGS (6)
  1. ALKERAN [Concomitant]
     Active Substance: MELPHALAN
     Dosage: 14 MILLIGRAM
     Route: 041
     Dates: start: 20100520, end: 20100523
  2. CORTANCYL [Concomitant]
     Active Substance: PREDNISONE
     Indication: PRODUCT USED FOR UNKNOWN INDICATION
     Dosage: 115 MILLIGRAM
     Route: 048
     Dates: start: 20100409
  3. THALIDOMIDE [Suspect]
     Active Substance: THALIDOMIDE
     Indication: PLASMA CELL MYELOMA
     Dosage: 200 MILLIGRAM
     Route: 048
     Dates: start: 20100409
  4. ALKERAN [Concomitant]
     Active Substance: MELPHALAN
     Indication: PLASMA CELL MYELOMA
     Dosage: 14 MILLIGRAM
     Route: 041
     Dates: start: 20100409
  5. THALIDOMIDE [Suspect]
     Active Substance: THALIDOMIDE
     Dosage: 200 MILLIGRAM
     Route: 048
     Dates: start: 20100520, end: 20101216
  6. CORTANCYL [Concomitant]
     Active Substance: PREDNISONE
     Dosage: 115 MILLIGRAM
     Route: 048
     Dates: start: 20100520, end: 20100523

REACTIONS (7)
  - Atelectasis [Recovered/Resolved]
  - Rales [Recovered/Resolved]
  - Oedema peripheral [Recovered/Resolved]
  - Pulmonary embolism [Recovered/Resolved]
  - Pulmonary embolism [Recovered/Resolved]
  - Dyspnoea [Recovered/Resolved]
  - Deep vein thrombosis [Recovered/Resolved]

NARRATIVE: CASE EVENT DATE: 2010
